FAERS Safety Report 10257232 (Version 1)
Quarter: 2014Q2

REPORT INFORMATION
  Report Type: Spontaneous
  Country: FR (occurrence: None)
  Receive Date: 20140620
  Receipt Date: 20140620
  Transmission Date: 20141212
  Serious: Yes (Hospitalization)
  Sender: FDA-Public Use
  Company Number: 2014-001774

PATIENT
  Age: 60 Year
  Sex: Female

DRUGS (2)
  1. ACTONEL (RISEDRONATE SODIUM) TABLET, 75MG [Suspect]
     Dosage: 2 CONSECUTIVE DAYS A MONTH
     Route: 048
     Dates: start: 200304, end: 201103
  2. CALTRATE + D /00944201/ [Suspect]
     Route: 048
     Dates: start: 200304, end: 201103

REACTIONS (2)
  - Faecalith [None]
  - Cholecystectomy [None]
